FAERS Safety Report 4731216-2 (Version None)
Quarter: 2005Q3

REPORT INFORMATION
  Report Type: 
  Country: None (occurrence: None)
  Receive Date: 20050802
  Receipt Date: 20050721
  Transmission Date: 20060218
  Serious: Yes (Life-Threatening)
  Sender: FDA-Public Use
  Company Number: IT-JNJFOC-20050704205

PATIENT
  Sex: Female

DRUGS (4)
  1. REMICADE [Suspect]
     Indication: RHEUMATOID ARTHRITIS
     Route: 042
  2. METHOTREXATE [Suspect]
     Indication: RHEUMATOID ARTHRITIS
     Route: 030
  3. MEDROL [Concomitant]
     Route: 065
  4. ARTHROTEC [Concomitant]
     Dosage: 1-2 TABLETS
     Route: 065

REACTIONS (3)
  - EPSTEIN-BARR VIRUS INFECTION [None]
  - METASTASES TO LYMPH NODES [None]
  - NASOPHARYNGEAL CANCER [None]
